FAERS Safety Report 9192088 (Version 3)
Quarter: 2013Q3

REPORT INFORMATION
  Report Type: Spontaneous
  Country: US (occurrence: US)
  Receive Date: 20130327
  Receipt Date: 20130709
  Transmission Date: 20140515
  Serious: No
  Sender: FDA-Public Use
  Company Number: US-009507513-1303USA011042

PATIENT
  Sex: 0
  Weight: 59.41 kg

DRUGS (1)
  1. NEXPLANON [Suspect]
     Dosage: 1 DF, UNK
     Route: 059
     Dates: start: 20130315

REACTIONS (3)
  - Dyspepsia [Unknown]
  - Complication of device insertion [Unknown]
  - Product quality issue [Unknown]
